FAERS Safety Report 19872497 (Version 3)
Quarter: 2021Q4

REPORT INFORMATION
  Report Type: Report from Study
  Country: KR (occurrence: KR)
  Receive Date: 20210923
  Receipt Date: 20211015
  Transmission Date: 20220303
  Serious: Yes (Hospitalization)
  Sender: FDA-Public Use
  Company Number: KR-CELLTRION INC.-2021KR012757

PATIENT

DRUGS (29)
  1. HERZUMA [Suspect]
     Active Substance: TRASTUZUMAB-PKRB
     Indication: Bile duct cancer
     Dosage: 364.8 MG, CYCLIC, ONCE EVERY TWO WEEKS
     Route: 042
     Dates: start: 20200924
  2. HERZUMA [Suspect]
     Active Substance: TRASTUZUMAB-PKRB
     Dosage: 243.2 MG, CYCLIC, ONCE EVERY TWO WEEKS
     Route: 042
     Dates: start: 20210831
  3. OXALIPLATIN [Suspect]
     Active Substance: OXALIPLATIN
     Indication: Bile duct cancer
     Dosage: 138.6 MG
     Route: 042
     Dates: start: 20200924
  4. OXALIPLATIN [Suspect]
     Active Substance: OXALIPLATIN
     Dosage: 81.5 MG
     Route: 042
     Dates: start: 20210831
  5. LEUCOVORIN [Suspect]
     Active Substance: LEUCOVORIN
     Indication: Bile duct cancer
     Dosage: 326 MG
     Route: 042
     Dates: start: 20200924
  6. LEUCOVORIN [Suspect]
     Active Substance: LEUCOVORIN
     Dosage: 326 MG
     Route: 042
     Dates: start: 20210831
  7. FLUOROURACIL [Suspect]
     Active Substance: FLUOROURACIL
     Indication: Bile duct cancer
     Dosage: 652 MG
     Route: 040
     Dates: start: 20200924
  8. FLUOROURACIL [Suspect]
     Active Substance: FLUOROURACIL
     Dosage: 3912 MG (INFUSION)
     Route: 042
     Dates: start: 20200924
  9. FLUOROURACIL [Suspect]
     Active Substance: FLUOROURACIL
     Dosage: 2445 MG (INFUSION)
     Route: 042
     Dates: start: 20210831
  10. Duphalac Easy Syr [Concomitant]
     Indication: Prophylaxis
     Dosage: 15 ML, PRN
     Route: 048
     Dates: start: 20200925
  11. Macperan Tab [Concomitant]
     Indication: Prophylaxis
     Dosage: 5 MG, PRN
     Route: 048
     Dates: start: 20200925
  12. Godex Cap [Concomitant]
     Indication: Prophylaxis
     Dosage: 1 CAP, TID
     Route: 048
     Dates: start: 20201104
  13. LYRICA [Concomitant]
     Active Substance: PREGABALIN
     Indication: Peripheral sensory neuropathy
     Dosage: 150 MG, BID
     Route: 048
     Dates: start: 20210106
  14. LYRICA [Concomitant]
     Active Substance: PREGABALIN
     Indication: Oral dysaesthesia
  15. Norzyme cap [Concomitant]
     Indication: Dyspepsia
     Dosage: 457.7 MG, PRN
     Route: 048
     Dates: start: 20210224
  16. Etravil Tab [Concomitant]
     Indication: Peripheral sensory neuropathy
     Dosage: 10 MG, QD
     Route: 048
     Dates: start: 20210407
  17. Etravil Tab [Concomitant]
     Indication: Oral dysaesthesia
  18. URSODIOL [Concomitant]
     Active Substance: URSODIOL
     Indication: Prophylaxis
     Dosage: 200 MG, TID
     Route: 048
     Dates: start: 20210518
  19. Magnesium Oxide Tab [Concomitant]
     Indication: Prophylaxis
     Dosage: 500 MG, TID
     Route: 048
     Dates: start: 20210813
  20. NALOXONE HYDROCHLORIDE\OXYCODONE HYDROCHLORIDE [Concomitant]
     Active Substance: NALOXONE HYDROCHLORIDE\OXYCODONE HYDROCHLORIDE
     Indication: Abdominal pain
     Dosage: 1 TAB, BID
     Route: 048
     Dates: start: 20210818, end: 20210830
  21. NALOXONE HYDROCHLORIDE\OXYCODONE HYDROCHLORIDE [Concomitant]
     Active Substance: NALOXONE HYDROCHLORIDE\OXYCODONE HYDROCHLORIDE
     Dosage: 1 TAB, BID
     Route: 048
     Dates: start: 20210914, end: 20210915
  22. Tiropa Tab [Concomitant]
     Indication: Abdominal pain
     Dosage: 100 MG, PRN
     Route: 048
     Dates: start: 20210818, end: 20210830
  23. Beszyme Tab [Concomitant]
     Indication: Abdominal pain
     Dosage: 1 TAB, TID
     Route: 048
     Dates: start: 20210831
  24. Tylenol 8Hours ER Tab [Concomitant]
     Indication: Pyrexia
     Dosage: 1300 MG, PRN
     Route: 048
     Dates: start: 20210908, end: 20210930
  25. PIPERACILLIN SODIUM\TAZOBACTAM SODIUM [Concomitant]
     Active Substance: PIPERACILLIN SODIUM\TAZOBACTAM SODIUM
     Indication: Pyrexia
     Dosage: 4.5 G, ONCE
     Route: 042
     Dates: start: 20210914, end: 20210914
  26. BANAN [Concomitant]
     Active Substance: CEFPODOXIME PROXETIL
     Indication: Pyrexia
     Dosage: 100 MG, BID
     Route: 048
     Dates: start: 20210914, end: 20210915
  27. Levoplus tab [Concomitant]
     Indication: Pyrexia
     Dosage: 750 MG, QD
     Route: 048
     Dates: start: 20210914, end: 20210915
  28. IRCODON TAB [Concomitant]
     Indication: Abdominal pain
     Dosage: 5 MG, PRN
     Route: 048
     Dates: start: 20210914
  29. Daewon Morphine Sulfate Hydrate Inj [Concomitant]
     Indication: Abdominal pain
     Dosage: 5 MG, ONCE
     Route: 042
     Dates: start: 20210914, end: 20210914

REACTIONS (2)
  - Biliary tract infection [Recovered/Resolved]
  - Off label use [Unknown]

NARRATIVE: CASE EVENT DATE: 20210915
